FAERS Safety Report 20208422 (Version 1)
Quarter: 2021Q4

REPORT INFORMATION
  Report Type: Spontaneous
  Country: GB (occurrence: GB)
  Receive Date: 20211220
  Receipt Date: 20211220
  Transmission Date: 20220303
  Serious: Yes (Disabling, Other)
  Sender: FDA-Public Use
  Company Number: None

PATIENT
  Age: 80 Year
  Sex: Male
  Weight: 82 kg

DRUGS (15)
  1. ISOSORBIDE MONONITRATE [Interacting]
     Active Substance: ISOSORBIDE MONONITRATE
     Dates: start: 20211106
  2. ALLOPURINOL [Concomitant]
     Active Substance: ALLOPURINOL
     Dates: start: 20210609
  3. ASPIRIN [Concomitant]
     Active Substance: ASPIRIN
     Dosage: WITH BREAKFAST
     Dates: start: 20210921
  4. ATORVASTATIN [Concomitant]
     Active Substance: ATORVASTATIN
     Dosage: AT NIGHT
     Dates: start: 20211201
  5. BETAMETHASONE VALERATE [Concomitant]
     Active Substance: BETAMETHASONE VALERATE
     Dates: start: 20191018
  6. FINASTERIDE [Concomitant]
     Active Substance: FINASTERIDE
     Dates: start: 20210713
  7. NITROGLYCERIN [Concomitant]
     Active Substance: NITROGLYCERIN
     Dates: start: 20210921, end: 20211120
  8. INVITA-D3 [Concomitant]
     Dosage: DRINK THE CONTENTS OF ONE AMPOULE, ONCE EVERY T...
     Dates: start: 20210208
  9. LOSARTAN [Interacting]
     Active Substance: LOSARTAN
     Dates: start: 20210609
  10. POLYETHYLENE GLYCOLS [Concomitant]
     Active Substance: POLYETHYLENE GLYCOLS
     Dates: start: 20210713
  11. MEMANTINE [Concomitant]
     Active Substance: MEMANTINE
     Dates: start: 20210609
  12. MIRABEGRON [Concomitant]
     Active Substance: MIRABEGRON
     Dates: start: 20210713
  13. OMEPRAZOLE [Concomitant]
     Active Substance: OMEPRAZOLE
     Dates: start: 20210713
  14. SENNA [Concomitant]
     Active Substance: SENNA LEAF\SENNOSIDES\SENNOSIDES A AND B
     Dosage: EACH NIGHT
     Dates: start: 20171220
  15. TAMSULOSIN HYDROCHLORIDE [Concomitant]
     Active Substance: TAMSULOSIN HYDROCHLORIDE
     Dates: start: 20210713

REACTIONS (5)
  - Somnolence [Recovered/Resolved]
  - Loss of consciousness [Recovered/Resolved]
  - Fatigue [Unknown]
  - Seizure [Unknown]
  - Drug interaction [Unknown]

NARRATIVE: CASE EVENT DATE: 20211128
